FAERS Safety Report 9670321 (Version 1)
Quarter: 2013Q4

REPORT INFORMATION
  Report Type: Spontaneous
  Country: CA (occurrence: None)
  Receive Date: 20131029
  Receipt Date: 20131029
  Transmission Date: 20140711
  Serious: Yes (Other)
  Sender: FDA-Public Use
  Company Number: 2013038517

PATIENT
  Age: 63 Year
  Sex: Male

DRUGS (1)
  1. ALBUREX [Suspect]
     Dates: start: 20131017, end: 20131017

REACTIONS (8)
  - Shock [None]
  - Respiratory distress [None]
  - Decreased eye contact [None]
  - Agitation [None]
  - Tachypnoea [None]
  - Peripheral coldness [None]
  - Pain [None]
  - Pyrexia [None]
